FAERS Safety Report 8767903 (Version 2)
Quarter: 2013Q2

REPORT INFORMATION
  Report Type: Spontaneous
  Country: US (occurrence: US)
  Receive Date: 20120904
  Receipt Date: 20130506
  Transmission Date: 20140414
  Serious: No
  Sender: FDA-Public Use
  Company Number: US-AMGEN-USASP2012052553

PATIENT
  Age: 49 Year
  Sex: Female

DRUGS (2)
  1. ENBREL [Suspect]
     Indication: RHEUMATOID ARTHRITIS
     Dosage: 50 MG, QWK
     Route: 058
     Dates: start: 20120815, end: 20130407
  2. METHOTREXATE [Concomitant]
     Dosage: 2.5 MG, QWK
     Dates: start: 201204, end: 20121027

REACTIONS (8)
  - Hypertension [Recovered/Resolved]
  - Tachycardia [Recovered/Resolved]
  - Upper respiratory tract infection [Recovered/Resolved]
  - Sinusitis [Recovered/Resolved]
  - Pharyngitis streptococcal [Recovered/Resolved]
  - Oral candidiasis [Recovered/Resolved]
  - Lung infection [Recovered/Resolved]
  - Localised infection [Recovered/Resolved]
